FAERS Safety Report 7725126-6 (Version None)
Quarter: 2011Q3

REPORT INFORMATION
  Report Type: 
  Country: None (occurrence: None)
  Receive Date: 20110901
  Receipt Date: 20110830
  Transmission Date: 20111222
  Serious: Yes (Other)
  Sender: FDA-Public Use
  Company Number: ZA-PFIZER INC-2011202662

PATIENT
  Sex: Male
  Weight: 84 kg

DRUGS (2)
  1. WARFARIN [Concomitant]
     Dosage: UNK
  2. ATORVASTATIN CALCIUM [Suspect]
     Dosage: 20 MG, 1X/DAY
     Route: 048
     Dates: end: 20110601

REACTIONS (2)
  - ABDOMINAL PAIN UPPER [None]
  - ABDOMINAL PAIN [None]
